FAERS Safety Report 8410967-2 (Version None)
Quarter: 2012Q2

REPORT INFORMATION
  Report Type: 
  Country: None (occurrence: None)
  Receive Date: 20120323
  Receipt Date: 20111102
  Transmission Date: 20120825
  Serious: Yes (Other)
  Sender: FDA-Public Use
  Company Number: 163-21880-11120338

PATIENT
  Age: 63 Year
  Sex: Male
  Weight: 78.4723 kg

DRUGS (17)
  1. LEVOXYL (LEVOTHYROXINE SODIUM) (UNKNOWN) [Concomitant]
  2. ACIPHEX (RABEPRAZOLE SODIUM) (UNKNOWN) [Concomitant]
  3. CENTRUM SILVER (CENTRUM SILVER) (UNKNOWN) [Concomitant]
  4. INSULIN (INSULIN) (INJECTION) [Concomitant]
  5. ZOCOR (SIMVASTATIN) (UNKNOWN) [Concomitant]
  6. VITAMIN B12 (CYANOCOBALAMIN) (UNKNOWN) [Concomitant]
  7. FISH OIL (FISH OIL) (UNKNOWN) [Concomitant]
  8. DIGOXIN [Concomitant]
  9. VITAMIN D (ERGOCALCIFEROL) (UNKNOWN) [Concomitant]
  10. PLAVIX [Concomitant]
  11. VITAMIN B6 (PYRIDOXINE HYDROCHLORIDE) (UNKNOWN) [Concomitant]
  12. FLAGYL [Concomitant]
  13. LASIX [Concomitant]
  14. REVATIO (SILDENAFIL CITRATE) (UNKNOWN) [Concomitant]
  15. COREG (CARVEDILOL) (UNKNOWN) [Concomitant]
  16. REVLIMID [Suspect]
     Indication: MYELODYSPLASTIC SYNDROME
     Dosage: 10 MG, 21/7, PO
     Route: 048
     Dates: start: 20111104
  17. POTASSIUM (POTASSIUM) (UNKNOWN) [Concomitant]

REACTIONS (1)
  - HAEMOGLOBIN DECREASED [None]
